FAERS Safety Report 6529262-1 (Version None)
Quarter: 2009Q4

REPORT INFORMATION
  Report Type: 
  Country: None (occurrence: None)
  Receive Date: 20091222
  Receipt Date: 20091211
  Transmission Date: 20100525
  Serious: Yes (Death, Life-Threatening)
  Sender: FDA-Public Use
  Company Number: THYM-1001081

PATIENT
  Age: 56 Year
  Sex: Female
  Weight: 59 kg

DRUGS (6)
  1. THYMOGLOBULIN [Suspect]
     Indication: APLASTIC ANAEMIA
     Dosage: 3.5 MG/KG, QD, INTRAVENOUS
     Route: 042
     Dates: start: 20090511, end: 20090515
  2. METHYLPREDNISOLONE [Concomitant]
  3. CYCLOSPORINE [Concomitant]
  4. ITRACONAZOLE [Concomitant]
  5. SULFAMETHOXAZOLE AND TRIMETHOPRIM [Concomitant]
  6. FILGRASTIM (FILGRASTIM) [Concomitant]

REACTIONS (4)
  - CARDIAC FAILURE ACUTE [None]
  - CYTOMEGALOVIRUS INFECTION [None]
  - PNEUMONIA [None]
  - RENAL FAILURE ACUTE [None]
